FAERS Safety Report 26051324 (Version 1)
Quarter: 2025Q4

REPORT INFORMATION
  Report Type: Spontaneous
  Country: US (occurrence: US)
  Receive Date: 20251117
  Receipt Date: 20251117
  Transmission Date: 20260117
  Serious: No
  Sender: BAUSCH AND LOMB
  Company Number: US-BAUSCHBL-2025BNL031638

PATIENT
  Sex: Female

DRUGS (4)
  1. HYDROCORTISONE\NEOMYCIN SULFATE\POLYMYXIN B SULFATE [Suspect]
     Active Substance: HYDROCORTISONE\NEOMYCIN SULFATE\POLYMYXIN B SULFATE
     Indication: Middle ear effusion
     Route: 047
     Dates: start: 20251105, end: 20251105
  2. HYDROCORTISONE\NEOMYCIN SULFATE\POLYMYXIN B SULFATE [Suspect]
     Active Substance: HYDROCORTISONE\NEOMYCIN SULFATE\POLYMYXIN B SULFATE
     Indication: Medication error
     Dates: start: 20160706
  3. HYDROCORTISONE\NEOMYCIN SULFATE\POLYMYXIN B SULFATE [Suspect]
     Active Substance: HYDROCORTISONE\NEOMYCIN SULFATE\POLYMYXIN B SULFATE
     Indication: Dizziness
  4. FLAREX [Concomitant]
     Active Substance: FLUOROMETHOLONE ACETATE
     Indication: Product used for unknown indication

REACTIONS (4)
  - Eye irritation [Unknown]
  - Incorrect route of product administration [Unknown]
  - Accidental exposure to product [Unknown]
  - Exposure via eye contact [Unknown]
